FAERS Safety Report 20596417 (Version 6)
Quarter: 2022Q2

REPORT INFORMATION
  Report Type: Spontaneous
  Country: GB (occurrence: None)
  Receive Date: 20220315
  Receipt Date: 20220422
  Transmission Date: 20220721
  Serious: Yes (Hospitalization, Other)
  Sender: FDA-Public Use
  Company Number: None

PATIENT
  Age: 86 Year
  Sex: Female

DRUGS (24)
  1. BISOPROLOL FUMARATE [Suspect]
     Active Substance: BISOPROLOL FUMARATE
     Indication: Product used for unknown indication
     Dosage: 10 MG,QD
     Route: 048
  2. BISOPROLOL FUMARATE [Suspect]
     Active Substance: BISOPROLOL FUMARATE
     Dates: end: 20180207
  3. LEVOTHYROXINE SODIUM [Suspect]
     Active Substance: LEVOTHYROXINE SODIUM
     Indication: Product used for unknown indication
     Dosage: DOSAGE FORM 245
     Route: 065
  4. LEVOTHYROXINE SODIUM [Suspect]
     Active Substance: LEVOTHYROXINE SODIUM
     Route: 065
  5. LEVOTHYROXINE SODIUM [Suspect]
     Active Substance: LEVOTHYROXINE SODIUM
     Route: 065
  6. LEVOTHYROXINE SODIUM [Suspect]
     Active Substance: LEVOTHYROXINE SODIUM
     Route: 065
  7. LEVOTHYROXINE SODIUM [Suspect]
     Active Substance: LEVOTHYROXINE SODIUM
     Dosage: 125 UG, QD(MORNING), 1 DF - 50G, ONCE DAILY
  8. DIGOXIN [Suspect]
     Active Substance: DIGOXIN
     Indication: Product used for unknown indication
     Dosage: 62.5 UG, QD(MORNING)
     Route: 065
  9. DIGOXIN [Suspect]
     Active Substance: DIGOXIN
     Dosage: UNK
  10. APIXABAN [Suspect]
     Active Substance: APIXABAN
     Indication: Atrial fibrillation
     Dosage: 10 MG,QD
     Dates: end: 20180207
  11. APIXABAN [Suspect]
     Active Substance: APIXABAN
     Indication: Cerebrovascular accident prophylaxis
     Dosage: 5 MG,QD
     Dates: end: 20180207
  12. CETIRIZINE HYDROCHLORIDE [Suspect]
     Active Substance: CETIRIZINE HYDROCHLORIDE
     Indication: Product used for unknown indication
     Dosage: 10 MG,QD (MORNING)
     Route: 048
  13. LINAGLIPTIN [Suspect]
     Active Substance: LINAGLIPTIN
     Indication: Product used for unknown indication
     Dosage: 5 MG,QD(MORNING)
     Route: 065
  14. LINAGLIPTIN [Suspect]
     Active Substance: LINAGLIPTIN
     Dosage: UNK
  15. SIMVASTATIN [Suspect]
     Active Substance: SIMVASTATIN
     Indication: Product used for unknown indication
     Dosage: 40 MG,QD((NIGHT)
     Route: 048
  16. SIMVASTATIN [Suspect]
     Active Substance: SIMVASTATIN
     Dosage: UNK
     Route: 048
  17. CANDESARTAN CILEXETIL [Suspect]
     Active Substance: CANDESARTAN CILEXETIL
     Indication: Product used for unknown indication
     Dosage: 2 MG,QD(MORNING)
     Route: 048
  18. CANDESARTAN CILEXETIL [Suspect]
     Active Substance: CANDESARTAN CILEXETIL
     Dosage: UNK
  19. LANSOPRAZOLE [Suspect]
     Active Substance: LANSOPRAZOLE
     Indication: Product used for unknown indication
     Dosage: 30 MG,QD(MORNING)
     Route: 065
  20. LANSOPRAZOLE [Suspect]
     Active Substance: LANSOPRAZOLE
     Dosage: 10 MG (1 DAY)
     Route: 065
     Dates: end: 20180207
  21. LANSOPRAZOLE [Suspect]
     Active Substance: LANSOPRAZOLE
     Dosage: 5 MG QD
     Route: 065
     Dates: end: 20180207
  22. ISOSORBIDE MONONITRATE [Suspect]
     Active Substance: ISOSORBIDE MONONITRATE
     Indication: Product used for unknown indication
     Dosage: 50 MG,QD(MORNING)
     Route: 048
  23. ISOSORBIDE MONONITRATE [Suspect]
     Active Substance: ISOSORBIDE MONONITRATE
     Dosage: UNK
  24. HYDROCHLOROTHIAZIDE [Suspect]
     Active Substance: HYDROCHLOROTHIAZIDE
     Indication: Product used for unknown indication
     Dosage: 2 MILLIGRAM, QD
     Route: 048

REACTIONS (2)
  - Subarachnoid haemorrhage [Recovered/Resolved with Sequelae]
  - Off label use [Unknown]
